FAERS Safety Report 7044613-X (Version None)
Quarter: 2010Q4

REPORT INFORMATION
  Report Type: 
  Country: None (occurrence: None)
  Receive Date: 20101014
  Receipt Date: 20101012
  Transmission Date: 20110411
  Serious: Yes (Death)
  Sender: FDA-Public Use
  Company Number: US-SANOFI-AVENTIS-2010SA062379

PATIENT
  Age: 69 Year
  Sex: Male
  Weight: 89.8 kg

DRUGS (12)
  1. TAXOTERE [Suspect]
     Indication: PROSTATE CANCER
     Route: 041
     Dates: start: 20100721, end: 20100721
  2. TAXOTERE [Suspect]
     Route: 041
     Dates: start: 20100922, end: 20100922
  3. ZOLADEX [Suspect]
     Indication: PROSTATE CANCER
     Dates: start: 20100721, end: 20100922
  4. ASPIRIN [Concomitant]
  5. LISINOPRIL AND HYDROCHLOROTHIAZIDE [Concomitant]
  6. LOPERAMIDE [Concomitant]
  7. OMEPRAZOLE [Concomitant]
  8. BICALUTAMIDE [Concomitant]
  9. COMPAZINE [Concomitant]
  10. GABAPENTIN [Concomitant]
  11. METFORMIN HYDROCHLORIDE [Concomitant]
  12. METOPROLOL [Concomitant]

REACTIONS (1)
  - DEATH [None]
